FAERS Safety Report 4957379-1 (Version None)
Quarter: 2006Q1

REPORT INFORMATION
  Report Type: 
  Country: None (occurrence: None)
  Receive Date: 20060327
  Receipt Date: 20060316
  Transmission Date: 20060701
  Serious: Yes (Other)
  Sender: FDA-Public Use
  Company Number: 2006037177

PATIENT
  Age: 15 Year
  Sex: Female
  Weight: 58.9676 kg

DRUGS (1)
  1. VISINE II EYE DROPS [Suspect]
     Indication: ACCIDENTAL EXPOSURE
     Dosage: 1/2 BOTTLE ONE TIME; ORAL
     Route: 048
     Dates: start: 20060316, end: 20060316

REACTIONS (2)
  - ACCIDENTAL EXPOSURE [None]
  - NAUSEA [None]
